FAERS Safety Report 10678185 (Version 1)
Quarter: 2014Q4

REPORT INFORMATION
  Report Type: Spontaneous
  Country: JP (occurrence: None)
  Receive Date: 20141223
  Receipt Date: 20141223
  Transmission Date: 20150529
  Serious: Yes (Hospitalization)
  Sender: FDA-Public Use
  Company Number: IPC201412-000677

PATIENT
  Age: 74 Year
  Sex: Male

DRUGS (3)
  1. TOLVAPTAN [Concomitant]
     Active Substance: TOLVAPTAN
  2. SPIRONOLACTONE. [Concomitant]
     Active Substance: SPIRONOLACTONE
  3. FUROSEMIDE (FUROSEMIDE) (FUROSEMIDE) [Suspect]
     Active Substance: FUROSEMIDE
     Indication: ASCITES
     Route: 048

REACTIONS (10)
  - Ascites [None]
  - Condition aggravated [None]
  - Aspartate aminotransferase increased [None]
  - Urine osmolarity decreased [None]
  - Blood alkaline phosphatase increased [None]
  - Blood potassium decreased [None]
  - Drug ineffective [None]
  - Blood bilirubin increased [None]
  - Alanine aminotransferase increased [None]
  - Blood chloride increased [None]
